FAERS Safety Report 5875755-X (Version None)
Quarter: 2008Q3

REPORT INFORMATION
  Report Type: 
  Country: None (occurrence: None)
  Receive Date: 20080905
  Receipt Date: 20080828
  Transmission Date: 20090109
  Serious: Yes (Life-Threatening, Hospitalization)
  Sender: FDA-Public Use
  Company Number: GXKR2008DK08235

PATIENT
  Age: 65 Year
  Sex: Male

DRUGS (5)
  1. ENALAPRIL MALEATE [Suspect]
     Indication: HYPERTENSION
     Dosage: 10 MG, ORAL
     Route: 048
     Dates: start: 20080812, end: 20080818
  2. PHENOXYMETHYLPENICILLIN [Suspect]
     Dosage: ORAL
     Route: 048
     Dates: start: 20080807
  3. METFORMIN HCL [Concomitant]
  4. CENTYL MED KALIUMKLORID (BENDROFLUMETHIAZIDE, POTASSIUM CHLORIDE) COAT [Concomitant]
  5. FLUCONAZOLE [Concomitant]

REACTIONS (2)
  - ANGIOEDEMA [None]
  - DRUG INTERACTION [None]
